FAERS Safety Report 22013174 (Version 3)
Quarter: 2023Q1

REPORT INFORMATION
  Report Type: Spontaneous
  Country: US (occurrence: US)
  Receive Date: 20230220
  Receipt Date: 20230316
  Transmission Date: 20230418
  Serious: Yes (Hospitalization)
  Sender: FDA-Public Use
  Company Number: US-Calliditas-2023CAL00129

PATIENT
  Age: 70 Year
  Sex: Female

DRUGS (11)
  1. TARPEYO [Suspect]
     Active Substance: BUDESONIDE
     Indication: IgA nephropathy
     Dosage: 16 MG (4 CAPSULES) ONCE DAILY
     Route: 048
     Dates: start: 20221119, end: 202301
  2. CARVEDILOL [Concomitant]
     Active Substance: CARVEDILOL
     Dosage: 12.5MG TWICE A DAY
  3. FLUOXETINE [Concomitant]
     Active Substance: FLUOXETINE HYDROCHLORIDE
     Dosage: 20MG TWICE A DAY
  4. FUROSEMIDE [Concomitant]
     Active Substance: FUROSEMIDE
     Dosage: 20MG 2 TABLETS IN THE MORNING
  5. PANTOPRAZOLE [Concomitant]
     Active Substance: PANTOPRAZOLE
     Dosage: 40MG ONCE A DAY
  6. LORATADINE [Concomitant]
     Active Substance: LORATADINE
     Dosage: 10MG 1 TABLET A DAY
  7. MECLIZINE [Concomitant]
     Active Substance: MECLIZINE HYDROCHLORIDE
     Dosage: 25MG ONCE
  8. CENTRUM SILVER [ASCORBIC ACID;BIOTIN;CALCIUM;CALCIUM PANTOTHENATE;C... [Concomitant]
  9. TYLENOL EXTRA STRENGTH [Concomitant]
     Active Substance: ACETAMINOPHEN
     Dosage: 500MG 2 TABLETS THREE TIMES A DAY ; TIME INTERVAL:
  10. FENTANYL [Concomitant]
     Active Substance: FENTANYL
     Dosage: 25 MCG CHANGED EVERY 3 DAYS
  11. SUMATRIPTAN [Concomitant]
     Active Substance: SUMATRIPTAN
     Indication: Migraine
     Dosage: 50MG TABLETS AS NEEDED

REACTIONS (7)
  - Mental status changes [Recovered/Resolved]
  - Mental status changes [Recovered/Resolved]
  - Ammonia increased [Not Recovered/Not Resolved]
  - Asthenia [Recovering/Resolving]
  - Feeling abnormal [Unknown]
  - Decubitus ulcer [Recovered/Resolved]
  - Gait inability [Not Recovered/Not Resolved]

NARRATIVE: CASE EVENT DATE: 20221201
